FAERS Safety Report 5080741-6 (Version None)
Quarter: 2006Q3

REPORT INFORMATION
  Report Type: 
  Country: None (occurrence: None)
  Receive Date: 20060809
  Receipt Date: 20060724
  Transmission Date: 20061208
  Serious: Yes (Death, Hospitalization, Other)
  Sender: FDA-Public Use
  Company Number: 2006AL001992

PATIENT
  Age: 52 Year
  Sex: Male

DRUGS (2)
  1. CITALOPRAM HYDROBROMIDE [Suspect]
     Indication: DEPRESSION
     Dosage: 40 MG;PO
     Route: 048
     Dates: start: 20050201, end: 20050317
  2. DIAZEPAM [Suspect]
     Dosage: PO
     Route: 048
     Dates: start: 20050317, end: 20050317

REACTIONS (3)
  - COMPLETED SUICIDE [None]
  - INCORRECT DOSE ADMINISTERED [None]
  - INJURY ASPHYXIATION [None]
